FAERS Safety Report 12398634 (Version 1)
Quarter: 2016Q2

REPORT INFORMATION
  Report Type: Spontaneous
  Country: GB (occurrence: GB)
  Receive Date: 20160524
  Receipt Date: 20160524
  Transmission Date: 20160815
  Serious: Yes (Hospitalization)
  Sender: FDA-Public Use
  Company Number: GB-PFIZER INC-2016261893

PATIENT
  Age: 34 Year
  Sex: Female

DRUGS (1)
  1. SPIRONOLACTONE. [Suspect]
     Active Substance: SPIRONOLACTONE
     Indication: ABDOMINAL CAVITY DRAINAGE
     Dosage: 100 MG, 1X/DAY
     Route: 048

REACTIONS (3)
  - Rash [Unknown]
  - Urticaria [Unknown]
  - Blister [Unknown]
